FAERS Safety Report 8013836-5 (Version None)
Quarter: 2011Q4

REPORT INFORMATION
  Report Type: 
  Country: None (occurrence: None)
  Receive Date: 20111229
  Receipt Date: 20111222
  Transmission Date: 20120403
  Serious: Yes (Other)
  Sender: FDA-Public Use
  Company Number: PHEH2011US011001

PATIENT
  Sex: Female

DRUGS (2)
  1. EXJADE [Suspect]
     Dosage: 500 MG, QD
     Route: 048
     Dates: start: 20111114
  2. EXJADE [Suspect]
     Dosage: 500 MG, QD
     Route: 048

REACTIONS (7)
  - LIVER INJURY [None]
  - NASOPHARYNGITIS [None]
  - FACE OEDEMA [None]
  - ABDOMINAL DISCOMFORT [None]
  - VISUAL IMPAIRMENT [None]
  - DIARRHOEA [None]
  - NAUSEA [None]
